FAERS Safety Report 8507825 (Version 2)
Quarter: 2012Q4

REPORT INFORMATION
  Report Type: 
  Country: US (occurrence: US)
  Receive Date: 20120412
  Receipt Date: 20121112
  Transmission Date: 20130627
  Serious: No
  Sender: FDA-Public Use
  Company Number: US-ASTRAZENECA-2011SE21932

PATIENT
  Age: 48 Year
  Sex: Female

DRUGS (4)
  1. NEXIUM [Suspect]
     Route: 048
  2. PAROXETINE HCL [Suspect]
     Route: 048
  3. PAROXETINE HCL [Suspect]
     Route: 048
  4. ALPRAZOLAM [Suspect]
     Route: 048

REACTIONS (8)
  - Gastrooesophageal reflux disease [Unknown]
  - Vitamin D deficiency [Unknown]
  - Ligament sprain [Unknown]
  - Muscle strain [Unknown]
  - Anxiety disorder [Unknown]
  - Dyspepsia [Unknown]
  - Depression [Unknown]
  - Flatulence [Unknown]
